FAERS Safety Report 9185363 (Version 1)
Quarter: 2012Q4

REPORT INFORMATION
  Report Type: 
  Country: AU (occurrence: AU)
  Receive Date: 20121031
  Receipt Date: 20121031
  Transmission Date: 20130627
  Serious: Yes (Other)
  Sender: FDA-Public Use
  Company Number: AU-ELI_LILLY_AND_COMPANY-AU201210005288

PATIENT
  Age: 62 Year
  Sex: Female

DRUGS (2)
  1. CYMBALTA [Suspect]
     Dosage: 60 mg, unknown
  2. OTHER ANTIHYPERTENSIVES [Concomitant]
     Dosage: UNK, unknown

REACTIONS (2)
  - Parkinson^s disease [Recovering/Resolving]
  - Tremor [Recovering/Resolving]
